FAERS Safety Report 24838720 (Version 2)
Quarter: 2025Q1

REPORT INFORMATION
  Report Type: Spontaneous
  Country: DE (occurrence: DE)
  Receive Date: 20250113
  Receipt Date: 20250116
  Transmission Date: 20250409
  Serious: Yes (Other)
  Sender: BAUSCH AND LOMB
  Company Number: DE-BAUSCH-BL-2025-000284

PATIENT
  Age: 54 Year
  Sex: Female

DRUGS (8)
  1. PYRIDOSTIGMINE [Suspect]
     Active Substance: PYRIDOSTIGMINE
     Indication: Myasthenia gravis
     Dosage: UP TO 180MG DAILY
     Route: 042
  2. PYRIDOSTIGMINE [Suspect]
     Active Substance: PYRIDOSTIGMINE
     Dosage: INCREASED TO 240 MG DAILY  2 WEEKS PRIOR TO HOSPITAL ADMISSION
     Route: 042
  3. AZATHIOPRINE [Suspect]
     Active Substance: AZATHIOPRINE
     Indication: Myasthenic syndrome
     Dosage: STARTED 3MONTHS BEFORE ADMISSION AT A DAILY DOSE OF 150MG BY THE OUTPATIENT NEUROLOGIST
     Route: 065
  4. AZATHIOPRINE [Suspect]
     Active Substance: AZATHIOPRINE
     Indication: Off label use
     Dosage: REDUCED
     Route: 065
  5. PREDNISOLONE [Concomitant]
     Active Substance: PREDNISOLONE
     Indication: Myasthenia gravis
  6. PREDNISOLONE [Concomitant]
     Active Substance: PREDNISOLONE
     Dosage: INCREASED TO 20 MG DAILY
  7. PREDNISOLONE [Concomitant]
     Active Substance: PREDNISOLONE
  8. PREDNISOLONE [Concomitant]
     Active Substance: PREDNISOLONE

REACTIONS (5)
  - Myasthenia gravis [Unknown]
  - Drug intolerance [Unknown]
  - Gastrointestinal disorder [Unknown]
  - Hepatic enzyme increased [Recovered/Resolved]
  - Therapy non-responder [Unknown]
